FAERS Safety Report 5115546-0 (Version None)
Quarter: 2006Q3

REPORT INFORMATION
  Report Type: 
  Country: None (occurrence: None)
  Receive Date: 20060927
  Receipt Date: 20060922
  Transmission Date: 20061208
  Serious: Yes (Other)
  Sender: FDA-Public Use
  Company Number: BR-BRACCO-BRO-010624

PATIENT
  Age: 67 Year
  Sex: Female

DRUGS (5)
  1. IOPAMIRON [Suspect]
     Route: 013
     Dates: start: 20060817, end: 20060817
  2. IOPAMIRON [Suspect]
     Indication: ANGIOGRAM CEREBRAL
     Route: 013
     Dates: start: 20060817, end: 20060817
  3. CEFTAZIDIME [Concomitant]
     Route: 050
     Dates: start: 20060812
  4. VANCOMYCIN [Concomitant]
     Route: 050
     Dates: start: 20060812
  5. PHENYTOIN [Concomitant]
     Route: 050
     Dates: start: 20060812

REACTIONS (4)
  - AGITATION [None]
  - CYANOSIS [None]
  - HYPERTHERMIA [None]
  - TREMOR [None]
